FAERS Safety Report 14307805 (Version 1)
Quarter: 2017Q4

REPORT INFORMATION
  Report Type: Spontaneous
  Country: US (occurrence: US)
  Receive Date: 20171219
  Receipt Date: 20171219
  Transmission Date: 20180321
  Serious: Yes (Hospitalization)
  Sender: FDA-Public Use
  Company Number: None

PATIENT
  Age: 67 Year
  Sex: Female

DRUGS (12)
  1. MIDODRINE [Concomitant]
     Active Substance: MIDODRINE
  2. FUROSEMIDE. [Concomitant]
     Active Substance: FUROSEMIDE
  3. METOLAZONE. [Concomitant]
     Active Substance: METOLAZONE
  4. XANAX [Concomitant]
     Active Substance: ALPRAZOLAM
  5. HARVONI [Suspect]
     Active Substance: LEDIPASVIR\SOFOSBUVIR
     Indication: HEPATITIS C
     Route: 048
     Dates: start: 20171122
  6. BUMETANIDE. [Concomitant]
     Active Substance: BUMETANIDE
  7. XIFAXAN [Concomitant]
     Active Substance: RIFAXIMIN
  8. NORCO [Concomitant]
     Active Substance: ACETAMINOPHEN\HYDROCODONE BITARTRATE
  9. ONDANSETRON [Concomitant]
     Active Substance: ONDANSETRON
  10. SPIRONOLACTONE. [Concomitant]
     Active Substance: SPIRONOLACTONE
  11. LACTULOSE. [Concomitant]
     Active Substance: LACTULOSE
  12. ALPRAZOLAM. [Concomitant]
     Active Substance: ALPRAZOLAM

REACTIONS (1)
  - Liver function test decreased [None]

NARRATIVE: CASE EVENT DATE: 20171215
